FAERS Safety Report 7785454-5 (Version None)
Quarter: 2011Q3

REPORT INFORMATION
  Report Type: 
  Country: None (occurrence: None)
  Receive Date: 20110929
  Receipt Date: 20110926
  Transmission Date: 20111222
  Serious: Yes (Death, Other)
  Sender: FDA-Public Use
  Company Number: PHFR2011GB05365

PATIENT
  Sex: Male
  Weight: 157 kg

DRUGS (3)
  1. ISOPHANE INSULIN [Concomitant]
  2. CLOZAPINE [Suspect]
     Indication: SCHIZOPHRENIA
     Route: 048
     Dates: start: 20030603
  3. MAXEPA [Concomitant]
     Indication: HYPERCHOLESTEROLAEMIA
     Dosage: 2 G, TID
     Dates: start: 20101229

REACTIONS (4)
  - CELLULITIS [None]
  - INFECTION [None]
  - DEEP VEIN THROMBOSIS [None]
  - OBESITY [None]
